FAERS Safety Report 4613464-5 (Version None)
Quarter: 2005Q1

REPORT INFORMATION
  Report Type: 
  Country: None (occurrence: None)
  Receive Date: 20050321
  Receipt Date: 20050309
  Transmission Date: 20050727
  Serious: Yes (Hospitalization)
  Sender: FDA-Public Use
  Company Number: US-ABBOTT-05P-163-0293300-00

PATIENT
  Sex: Female
  Weight: 97.61 kg

DRUGS (23)
  1. HUMIRA [Suspect]
     Indication: RHEUMATOID ARTHRITIS
     Route: 058
     Dates: start: 20050211, end: 20050225
  2. LEVOTHYROXINE SODIUM [Concomitant]
     Indication: DRUG USE FOR UNKNOWN INDICATION
     Route: 048
  3. WARFARIN SODIUM [Concomitant]
     Indication: ATRIAL FIBRILLATION
     Route: 048
     Dates: start: 19950101
  4. FUROSEMIDE [Concomitant]
     Indication: DRUG USE FOR UNKNOWN INDICATION
     Route: 048
  5. FUROSEMIDE [Concomitant]
     Route: 048
     Dates: start: 20050226
  6. FUROSEMIDE [Concomitant]
     Dates: start: 20050226
  7. GABAPENTIN [Concomitant]
     Indication: NEUROPATHY
     Route: 048
  8. FOLTYX [Concomitant]
     Indication: DRUG USE FOR UNKNOWN INDICATION
     Route: 048
  9. POTASSIUM CHLORIDE [Concomitant]
     Indication: DRUG USE FOR UNKNOWN INDICATION
     Route: 048
  10. FENOFIBRATE [Concomitant]
     Indication: BLOOD TRIGLYCERIDES INCREASED
     Route: 048
  11. VALSARTAN [Concomitant]
     Indication: BLOOD PRESSURE INCREASED
     Route: 048
  12. ATORVASTATIN CALCIUM [Concomitant]
     Indication: BLOOD CHOLESTEROL INCREASED
     Route: 048
  13. AMITRIPTYLINE HYDROCHLORIDE [Concomitant]
     Indication: FIBROMYALGIA
     Route: 048
  14. METHOTREXATE [Concomitant]
     Indication: RHEUMATOID ARTHRITIS
     Route: 048
     Dates: start: 20040101
  15. CLONIDINE [Concomitant]
     Indication: DRUG USE FOR UNKNOWN INDICATION
  16. ESTROGENS CONJUGATED [Concomitant]
     Indication: DRUG USE FOR UNKNOWN INDICATION
  17. NICOTINIC ACID [Concomitant]
     Indication: DRUG USE FOR UNKNOWN INDICATION
  18. PROPACET 100 [Concomitant]
     Indication: PAIN
  19. ALPRAZOLAM [Concomitant]
     Indication: FEELING OF RELAXATION
  20. GLUCOSAMINE W/CHONDROITIN SULFATES [Concomitant]
     Indication: DRUG USE FOR UNKNOWN INDICATION
  21. MULTI-VITAMINS [Concomitant]
     Indication: DRUG USE FOR UNKNOWN INDICATION
  22. CALCIUM GLUCONATE [Concomitant]
     Indication: DRUG USE FOR UNKNOWN INDICATION
  23. TOCOPHEROL CONCENTRATE CAP [Concomitant]
     Indication: DRUG USE FOR UNKNOWN INDICATION
     Route: 048

REACTIONS (6)
  - BACK PAIN [None]
  - CARDIAC FAILURE CONGESTIVE [None]
  - DYSPNOEA [None]
  - HYPERTENSION [None]
  - RASH MACULAR [None]
  - SWELLING FACE [None]
